FAERS Safety Report 4423669-4 (Version None)
Quarter: 2004Q3

REPORT INFORMATION
  Report Type: 
  Country: None (occurrence: None)
  Receive Date: 20040719
  Receipt Date: 20040604
  Transmission Date: 20050211
  Serious: No
  Sender: FDA-Public Use
  Company Number: A03200401845

PATIENT
  Age: 78 Year
  Sex: Male
  Weight: 55.7924 kg

DRUGS (2)
  1. UROXATRAL [Suspect]
     Indication: BENIGN PROSTATIC HYPERPLASIA
     Dosage: 10 MG HS - ORAL
     Route: 048
     Dates: start: 20040607
  2. UROXATRAL [Suspect]
     Indication: POLLAKIURIA
     Dosage: 10 MG HS - ORAL
     Route: 048
     Dates: start: 20040607

REACTIONS (3)
  - BLOOD PRESSURE DECREASED [None]
  - DIZZINESS [None]
  - ORTHOSTATIC HYPOTENSION [None]
